FAERS Safety Report 23128074 (Version 3)
Quarter: 2023Q4

REPORT INFORMATION
  Report Type: Report from Study
  Country: CL (occurrence: CL)
  Receive Date: 20231031
  Receipt Date: 20231229
  Transmission Date: 20240110
  Serious: Yes (Other)
  Sender: FDA-Public Use
  Company Number: CL-002147023-NVSC2023CL228935

PATIENT
  Age: 16 Year
  Sex: Male
  Weight: 54 kg

DRUGS (2)
  1. OMNITROPE [Suspect]
     Active Substance: SOMATROPIN
     Indication: Product used for unknown indication
     Dosage: 1.5 MG, QD
     Route: 058
     Dates: start: 20200121
  2. OMNITROPE [Suspect]
     Active Substance: SOMATROPIN
     Dosage: 1.5 MG, QD
     Route: 058
     Dates: start: 201912, end: 20231120

REACTIONS (4)
  - Bone disorder [Unknown]
  - Weight increased [Unknown]
  - Malaise [Unknown]
  - Malocclusion [Unknown]
